APPROVED DRUG PRODUCT: PACLITAXEL
Active Ingredient: PACLITAXEL
Strength: 6MG/ML
Dosage Form/Route: INJECTABLE;INJECTION
Application: A075278 | Product #001
Applicant: PHARMOBEDIENT CONSULTING LLC
Approved: Jan 25, 2002 | RLD: No | RS: No | Type: DISCN